FAERS Safety Report 9422896 (Version 1)
Quarter: 2013Q3

REPORT INFORMATION
  Report Type: Spontaneous
  Country: ES (occurrence: ES)
  Receive Date: 20130726
  Receipt Date: 20130726
  Transmission Date: 20140515
  Serious: Yes (Hospitalization)
  Sender: FDA-Public Use
  Company Number: ES-ACTELION-A-CH2010-37276

PATIENT
  Age: 3 Month
  Sex: Male

DRUGS (5)
  1. TRACLEER [Suspect]
     Indication: EXTREMITY NECROSIS
     Dosage: 4 MG/KG, QD
     Route: 048
     Dates: start: 2009
  2. AAS [Concomitant]
  3. HEPARIN [Concomitant]
  4. NIFEDIPINE [Concomitant]
  5. CORTICOSTEROIDS [Concomitant]

REACTIONS (7)
  - Extremity necrosis [Recovering/Resolving]
  - Disease progression [Recovering/Resolving]
  - Respiratory distress [Recovered/Resolved]
  - Exchange blood transfusion [Recovering/Resolving]
  - Finger amputation [Recovering/Resolving]
  - Petechiae [Recovering/Resolving]
  - Purpura [Recovering/Resolving]
